FAERS Safety Report 10388757 (Version 1)
Quarter: 2014Q1

REPORT INFORMATION
  Report Type: Spontaneous
  Country: US (occurrence: None)
  Receive Date: 20140306
  Receipt Date: 20140306
  Transmission Date: 20141002
  Serious: Yes (Hospitalization, Other)
  Sender: FDA-Public Use
  Company Number: 163-21880-13123241

PATIENT
  Age: 79 Year
  Sex: Female

DRUGS (8)
  1. REVLIMID (LENALIDOMIDE) (25 MILLIGRAM, CAPSULES) [Suspect]
     Indication: PLASMA CELL MYELOMA
     Route: 048
     Dates: start: 20100924
  2. IBUPROFEN [Concomitant]
  3. ASA (ACETYLSALICYLIC ACID) [Concomitant]
  4. SYNTHROID (LEVOTHYROXINE SODIUM) [Concomitant]
  5. CALCIUM [Concomitant]
  6. LORAZEPAM [Concomitant]
  7. BENEFIBER (CYAMOPSIS TETRAGONAOLOBA GUM) [Concomitant]
  8. VITAMIN D3 (COLECALCIFEROL) [Concomitant]

REACTIONS (3)
  - Pneumonia [None]
  - Hallucination [None]
  - Fatigue [None]
